FAERS Safety Report 11164896 (Version 1)
Quarter: 2015Q2

REPORT INFORMATION
  Report Type: Report from Study
  Country: US (occurrence: US)
  Receive Date: 20150604
  Receipt Date: 20150604
  Transmission Date: 20150821
  Serious: Yes (Hospitalization)
  Sender: FDA-Public Use
  Company Number: US-BIOGENIDEC-2015BI073870

PATIENT
  Sex: Female

DRUGS (3)
  1. AUBAGIO [Concomitant]
     Active Substance: TERIFLUNOMIDE
  2. TYSABRI [Suspect]
     Active Substance: NATALIZUMAB
     Indication: MULTIPLE SCLEROSIS
     Route: 042
  3. TYSABRI [Suspect]
     Active Substance: NATALIZUMAB
     Indication: MULTIPLE SCLEROSIS
     Route: 042
     Dates: start: 20141013

REACTIONS (2)
  - Multiple sclerosis relapse [Unknown]
  - Paradoxical drug reaction [Unknown]
